FAERS Safety Report 19665557 (Version 1)
Quarter: 2021Q3

REPORT INFORMATION
  Report Type: Spontaneous
  Country: US (occurrence: US)
  Receive Date: 20210806
  Receipt Date: 20210806
  Transmission Date: 20211014
  Serious: Yes (Other)
  Sender: FDA-Public Use
  Company Number: US-ACCORD-227074

PATIENT
  Age: 66 Year
  Sex: Female

DRUGS (9)
  1. NEOSAR [Suspect]
     Active Substance: CYCLOPHOSPHAMIDE
     Indication: BREAST CANCER
     Dosage: NUMBER OF CYCLES: 04
     Dates: start: 20130315, end: 20130514
  2. ACETYLSALICYLIC ACID [Concomitant]
     Active Substance: ASPIRIN
     Dosage: STRENGTH?81MG
     Dates: start: 1985
  3. DIOVAN [Concomitant]
     Active Substance: VALSARTAN
     Dosage: STRENGTH?320MG
     Dates: start: 1985
  4. ZOCOR [Concomitant]
     Active Substance: SIMVASTATIN
     Dosage: STRENGTH?20 MG
     Dates: start: 1985
  5. CATAPRES [Concomitant]
     Active Substance: CLONIDINE HYDROCHLORIDE
     Dosage: STRENGTH? 0.1 MG
     Dates: start: 1985
  6. ZOLOFT [Concomitant]
     Active Substance: SERTRALINE HYDROCHLORIDE
     Dosage: STRENGTH?50 MG
     Dates: start: 1995
  7. DOCETAXEL ACCORD [Suspect]
     Active Substance: DOCETAXEL
     Indication: BREAST CANCER
     Dosage: NUMBER OF CYCLES: 04
     Dates: start: 20130315, end: 20130514
  8. POTASSIUM [Concomitant]
     Active Substance: POTASSIUM
     Dates: start: 1985
  9. NORVASC [Concomitant]
     Active Substance: AMLODIPINE BESYLATE
     Dosage: STRENGTH?10MG
     Dates: start: 1985

REACTIONS (1)
  - Alopecia [Not Recovered/Not Resolved]

NARRATIVE: CASE EVENT DATE: 201307
